FAERS Safety Report 7947940-4 (Version None)
Quarter: 2011Q4

REPORT INFORMATION
  Report Type: 
  Country: None (occurrence: None)
  Receive Date: 20111130
  Receipt Date: 20111118
  Transmission Date: 20120403
  Serious: Yes (Other)
  Sender: FDA-Public Use
  Company Number: DE-JNJFOC-20111108290

PATIENT
  Age: 65 Year
  Sex: Male

DRUGS (2)
  1. REMICADE [Suspect]
     Indication: POLYARTHRITIS
     Dosage: THERAPY DURATION: 2 YEARS
     Route: 042
     Dates: start: 20080201, end: 20110101
  2. METHOTREXATE [Concomitant]
     Indication: POLYARTHRITIS
     Dosage: DURATION: 8 YEARS
     Route: 048
     Dates: start: 20030201, end: 20110301

REACTIONS (1)
  - MYELODYSPLASTIC SYNDROME [None]
